FAERS Safety Report 16927073 (Version 1)
Quarter: 2019Q4

REPORT INFORMATION
  Report Type: Report from Study
  Country: GB (occurrence: GB)
  Receive Date: 20191016
  Receipt Date: 20191016
  Transmission Date: 20200122
  Serious: Yes (Life-Threatening, Other)
  Sender: FDA-Public Use
  Company Number: GB-MYLANLABS-2019M1097009

PATIENT
  Age: 55 Year
  Sex: Female

DRUGS (23)
  1. PACLITAXEL. [Suspect]
     Active Substance: PACLITAXEL
     Dosage: 450 MILLIGRAM, Q3W
     Route: 042
     Dates: start: 20170614, end: 20170614
  2. PACLITAXEL. [Suspect]
     Active Substance: PACLITAXEL
     Dosage: 300 MILLIGRAM, Q3W
     Route: 042
     Dates: start: 20170816, end: 20170906
  3. FLUCLOXACILLIN [Concomitant]
     Active Substance: FLUCLOXACILLIN
     Indication: FOLLICULITIS
     Dosage: UNK
     Route: 048
     Dates: start: 20190122, end: 201901
  4. TRASTUZUMAB. [Suspect]
     Active Substance: TRASTUZUMAB
     Dosage: LOADING DOSE
     Route: 042
     Dates: start: 20170524, end: 20170524
  5. TRASTUZUMAB. [Suspect]
     Active Substance: TRASTUZUMAB
     Dosage: LOADING DOSE
     Route: 042
     Dates: start: 20180516, end: 20190327
  6. LOPERAMIDE [Concomitant]
     Active Substance: LOPERAMIDE
     Dosage: 2 MILLIGRAM, PRN
     Route: 048
     Dates: start: 20170613
  7. SANDO K                            /00209301/ [Concomitant]
     Active Substance: POTASSIUM BICARBONATE\POTASSIUM CHLORIDE
     Dosage: 2 DOSAGE FORM, QD
     Route: 048
     Dates: start: 20170525
  8. CLOBETASOL PROPIONATE. [Concomitant]
     Active Substance: CLOBETASOL PROPIONATE
     Dosage: 0.1 PERCENT, QD
     Route: 061
     Dates: start: 20170210
  9. PARACETAMOL [Concomitant]
     Active Substance: ACETAMINOPHEN
     Dosage: 1 INTERNATIONAL UNIT, PRN
     Route: 048
     Dates: start: 20170525
  10. RANITIDINE. [Concomitant]
     Active Substance: RANITIDINE
     Dosage: 300 MILLIGRAM, QD
     Route: 048
     Dates: start: 20170525, end: 2017
  11. PERTUZUMAB. [Suspect]
     Active Substance: PERTUZUMAB
     Dosage: 420 MILLIGRAM, Q3W
     Route: 042
     Dates: start: 20170614, end: 20190327
  12. ERYTHROMYCIN. [Concomitant]
     Active Substance: ERYTHROMYCIN
     Indication: URTICARIA PAPULAR
     Dosage: UNK
     Route: 048
     Dates: start: 20190123, end: 20190202
  13. DOMPERIDONE [Concomitant]
     Active Substance: DOMPERIDONE
     Dosage: 30 MILLIGRAM, QD
     Route: 048
     Dates: start: 20170523
  14. TRASTUZUMAB. [Suspect]
     Active Substance: TRASTUZUMAB
     Indication: HER-2 POSITIVE BREAST CANCER
     Dosage: 240 MILLIGRAM, Q3W
     Route: 042
     Dates: start: 20190427
  15. TRASTUZUMAB. [Suspect]
     Active Substance: TRASTUZUMAB
     Dosage: DOSE MODIFIED
     Route: 042
     Dates: start: 20170614, end: 20180425
  16. PACLITAXEL. [Suspect]
     Active Substance: PACLITAXEL
     Indication: HER-2 POSITIVE BREAST CANCER
     Dosage: DRUG DISCONTINUED
     Route: 042
     Dates: start: 20170705, end: 20170726
  17. PERTUZUMAB. [Suspect]
     Active Substance: PERTUZUMAB
     Indication: HER-2 POSITIVE BREAST CANCER
     Dosage: LOADING DOSE
     Route: 042
     Dates: start: 20170524, end: 20170524
  18. ZOLEDRONIC ACID [Concomitant]
     Active Substance: ZOLEDRONIC ACID
     Dosage: EVERY 3 TO 4 WEEKS
     Route: 042
     Dates: start: 20170525
  19. CHLORHEXIDINE GLUCONATE. [Concomitant]
     Active Substance: CHLORHEXIDINE GLUCONATE
     Dosage: 40 MILLILITER, QD
     Route: 048
     Dates: start: 20170525
  20. DOCETAXEL. [Suspect]
     Active Substance: DOCETAXEL
     Indication: HER-2 POSITIVE BREAST CANCER
     Dosage: DRUG DISCONTINUED.
     Route: 042
     Dates: start: 20170525, end: 20170525
  21. CHLORPHENAMINE [Concomitant]
     Active Substance: CHLORPHENIRAMINE MALEATE
     Dosage: 16 MILLIGRAM, QD
     Route: 048
     Dates: start: 20170526
  22. CALCICHEW D3 FORTE [Concomitant]
     Active Substance: CALCIUM\CHOLECALCIFEROL
     Dosage: 2 DOSAGE FORM, QD
     Route: 048
     Dates: start: 20170525
  23. CETIRIZINE [Concomitant]
     Active Substance: CETIRIZINE HYDROCHLORIDE
     Indication: URTICARIA PAPULAR
     Dosage: 10 MILLIGRAM, QD
     Route: 048
     Dates: start: 20190313

REACTIONS (3)
  - Blepharitis [Not Recovered/Not Resolved]
  - Axillary vein thrombosis [Not Recovered/Not Resolved]
  - Subclavian vein thrombosis [Not Recovered/Not Resolved]

NARRATIVE: CASE EVENT DATE: 20170710
